FAERS Safety Report 6440132-X (Version None)
Quarter: 2009Q4

REPORT INFORMATION
  Report Type: 
  Country: None (occurrence: None)
  Receive Date: 20091113
  Receipt Date: 20090127
  Transmission Date: 20100525
  Serious: No
  Sender: FDA-Public Use
  Company Number: A0765485A

PATIENT
  Age: 39 Year
  Sex: Male

DRUGS (3)
  1. COREG [Suspect]
     Dosage: 25MG TWICE PER DAY
     Route: 048
     Dates: start: 20070101
  2. BLOOD PRESSURE MEDICATION [Concomitant]
  3. UNKNOWN MEDICATION [Concomitant]
     Indication: ARRHYTHMIA

REACTIONS (1)
  - SOMNOLENCE [None]
